FAERS Safety Report 5153718-X (Version None)
Quarter: 2006Q4

REPORT INFORMATION
  Report Type: 
  Country: None (occurrence: None)
  Receive Date: 20061118
  Receipt Date: 20061110
  Transmission Date: 20070319
  Serious: Yes (Other)
  Sender: FDA-Public Use
  Company Number: US-JNJFOC-20061102773

PATIENT
  Sex: Female
  Weight: 66.68 kg

DRUGS (11)
  1. REMICADE [Suspect]
     Indication: RHEUMATOID ARTHRITIS
     Route: 042
  2. ATENOLOL [Concomitant]
     Indication: BLOOD PRESSURE
  3. PROCARDIA XL [Concomitant]
     Indication: BLOOD PRESSURE
  4. MONOPRIL [Concomitant]
     Indication: BLOOD PRESSURE
  5. HYDRALAZINE HCL [Concomitant]
     Indication: BLOOD PRESSURE
  6. CATAPRES-TTS-1 [Concomitant]
     Indication: BLOOD PRESSURE
  7. SINGULAIR [Concomitant]
     Indication: HYPERSENSITIVITY
  8. FLONASE [Concomitant]
     Indication: HYPERSENSITIVITY
  9. OTC VITAMINS [Concomitant]
  10. FOLIC ACID [Concomitant]
     Indication: RHEUMATOID ARTHRITIS
  11. METHOTREXATE [Concomitant]
     Indication: RHEUMATOID ARTHRITIS

REACTIONS (2)
  - BREAST MASS [None]
  - HYPOAESTHESIA [None]
